FAERS Safety Report 17432091 (Version 3)
Quarter: 2020Q2

REPORT INFORMATION
  Report Type: Spontaneous
  Country: FR (occurrence: FR)
  Receive Date: 20200218
  Receipt Date: 20200515
  Transmission Date: 20200713
  Serious: Yes (Death)
  Sender: FDA-Public Use
  Company Number: FR-EPIHEALTH-2020-FR-000045

PATIENT
  Sex: Male

DRUGS (6)
  1. ACYCLOVIR (NON-SPECIFIC) [Suspect]
     Active Substance: ACYCLOVIR
     Indication: PRODUCT USED FOR UNKNOWN INDICATION
     Route: 065
  2. COLIMYCINE [Concomitant]
     Route: 065
     Dates: start: 20170718, end: 20170727
  3. COTRIMOXAZOLE [Suspect]
     Active Substance: SULFAMETHOXAZOLE\TRIMETHOPRIM
     Route: 065
  4. PROGRAF [Suspect]
     Active Substance: TACROLIMUS
     Route: 065
  5. NULOJIX [Suspect]
     Active Substance: BELATACEPT
     Route: 065
     Dates: start: 2014
  6. WELLVONE [Suspect]
     Active Substance: ATOVAQUONE
     Route: 065

REACTIONS (5)
  - Septic shock [Fatal]
  - Meningitis aseptic [Unknown]
  - Myelitis [Unknown]
  - Lung disorder [Unknown]
  - Sepsis [Unknown]
